FAERS Safety Report 8692798 (Version 3)
Quarter: 2012Q4

REPORT INFORMATION
  Report Type: Spontaneous
  Country: JP (occurrence: None)
  Receive Date: 20120712
  Receipt Date: 20120814
  Transmission Date: 20130627
  Serious: Yes (Death, Hospitalization)
  Sender: FDA-Public Use
  Company Number: 2012S1000755

PATIENT
  Age: 67 Year
  Sex: Male
  Weight: 80 kg

DRUGS (12)
  1. LIVALO [Suspect]
     Indication: DYSLIPIDAEMIA
     Route: 048
     Dates: start: 200608, end: 20120514
  2. LIVALO [Suspect]
     Indication: DYSLIPIDAEMIA
     Route: 048
     Dates: start: 20120515, end: 20120521
  3. LIVALO [Suspect]
     Indication: DYSLIPIDAEMIA
     Route: 048
     Dates: start: 20120522
  4. GASTER [Suspect]
     Dosage: 5 MG; 1X; PO
     Route: 048
     Dates: start: 200608
  5. BAYASPIRIN [Suspect]
     Dosage: 100 MG; BID; PO
     Route: 048
  6. NORVASC [Concomitant]
     Dosage: 150 MG; 1X^;PO
     Route: 048
  7. TICPILONE [Concomitant]
     Dosage: 20 MG; BID; PO
     Route: 048
     Dates: start: 200608
  8. RYTHMODAN [Concomitant]
     Dosage: 5 GM; BID; PO
     Route: 048
     Dates: end: 20120525
  9. SHAKUYAKUKANZOTO [Concomitant]
     Dosage: 60 MG; BID; PO
     Route: 048
     Dates: end: 20120525
  10. ALLEGRA [Concomitant]
     Dosage: 500 MG; TID; PO
     Route: 048
     Dates: end: 20120525
  11. MUCODYNE [Concomitant]
  12. ... [Concomitant]

REACTIONS (9)
  - Pyrexia [None]
  - Drug-induced liver injury [None]
  - Cerebral haemorrhage [None]
  - Hepatic function abnormal [None]
  - Cholestasis [None]
  - Aspartate aminotransferase increased [None]
  - Alanine aminotransferase increased [None]
  - Gamma-glutamyltransferase increased [None]
  - C-reactive protein increased [None]
